FAERS Safety Report 10668953 (Version 1)
Quarter: 2014Q4

REPORT INFORMATION
  Report Type: Spontaneous
  Country: US (occurrence: US)
  Receive Date: 20141222
  Receipt Date: 20141222
  Transmission Date: 20150529
  Serious: No
  Sender: FDA-Public Use
  Company Number: US-BAUSCH-BL-2014-006137

PATIENT
  Sex: Female

DRUGS (1)
  1. XENAZINE [Suspect]
     Active Substance: TETRABENAZINE
     Indication: HUNTINGTON^S DISEASE
     Dosage: 30 FOR 30
     Route: 048
     Dates: start: 201404, end: 20140828

REACTIONS (2)
  - Drug intolerance [Unknown]
  - Lethargy [Unknown]

NARRATIVE: CASE EVENT DATE: 2014
